FAERS Safety Report 9867651 (Version 2)
Quarter: 2014Q1

REPORT INFORMATION
  Report Type: Spontaneous
  Country: ZA (occurrence: ZA)
  Receive Date: 20140204
  Receipt Date: 20140204
  Transmission Date: 20141002
  Serious: Yes (Hospitalization)
  Sender: FDA-Public Use
  Company Number: ZA-PFIZER INC-2014028676

PATIENT
  Age: 51 Year
  Sex: Male

DRUGS (2)
  1. PHENYTOIN [Suspect]
     Indication: GRAND MAL CONVULSION
     Dosage: 100 MG, 3X/DAY
  2. PHENOBARBITONE SODIUM [Concomitant]
     Indication: GRAND MAL CONVULSION
     Dosage: 30 MG, 3X/DAY

REACTIONS (5)
  - Asterixis [Recovered/Resolved]
  - Asthenia [Recovered/Resolved]
  - Ataxia [Recovered/Resolved]
  - Nystagmus [Recovered/Resolved]
  - Neuropathy peripheral [Recovered/Resolved]
